FAERS Safety Report 9423624 (Version 1)
Quarter: 2013Q3

REPORT INFORMATION
  Report Type: Spontaneous
  Country: IR (occurrence: IR)
  Receive Date: 20130726
  Receipt Date: 20130726
  Transmission Date: 20140515
  Serious: Yes (Other)
  Sender: FDA-Public Use
  Company Number: PHHY2013IR077645

PATIENT
  Age: 20 Year
  Sex: Male

DRUGS (1)
  1. TRAMADOL [Suspect]
     Dosage: 3 G, UNK

REACTIONS (5)
  - Suicidal ideation [Unknown]
  - Grand mal convulsion [Unknown]
  - Tongue injury [Unknown]
  - Loss of consciousness [Unknown]
  - Toxicity to various agents [Unknown]
